FAERS Safety Report 21099124 (Version 4)
Quarter: 2022Q3

REPORT INFORMATION
  Report Type: Spontaneous
  Country: FR (occurrence: FR)
  Receive Date: 20220719
  Receipt Date: 20220830
  Transmission Date: 20221027
  Serious: Yes (Life-Threatening, Other)
  Sender: FDA-Public Use
  Company Number: None

PATIENT
  Age: 35 Year
  Sex: Male
  Weight: 70 kg

DRUGS (9)
  1. QUETIAPINE [Interacting]
     Active Substance: QUETIAPINE
     Indication: Psychotic disorder
     Dosage: 950 MILLIGRAM, QD
     Route: 048
     Dates: end: 20211208
  2. MILNACIPRAN [Interacting]
     Active Substance: MILNACIPRAN
     Indication: Psychotic disorder
     Dosage: 25 MILLIGRAM
     Route: 048
  3. MILNACIPRAN [Interacting]
     Active Substance: MILNACIPRAN
     Dosage: UNK
     Route: 065
  4. VALPROATE SODIUM [Interacting]
     Active Substance: VALPROATE SODIUM
     Indication: Psychotic disorder
     Dosage: 1 GRAM, QD
     Route: 048
     Dates: end: 20211208
  5. LOXAPINE [Interacting]
     Active Substance: LOXAPINE
     Indication: Psychotic disorder
     Dosage: 50 MILLIGRAM, PRN,ASNECESSARY
     Route: 048
     Dates: end: 20211208
  6. LEVOMEPROMAZINE [Interacting]
     Active Substance: LEVOMEPROMAZINE
     Indication: Psychotic disorder
     Dosage: 87.5 MILLIGRAM, QD (25 MG, RECEIVED AT THE DOSE OF 87.5 MG, QD)
     Route: 048
     Dates: end: 20211208
  7. MILNACIPRAN HYDROCHLORIDE [Interacting]
     Active Substance: MILNACIPRAN HYDROCHLORIDE
     Indication: Psychotic disorder
     Dosage: 25 MILLIGRAM, QD
     Route: 048
     Dates: end: 20211208
  8. VALIUM [Interacting]
     Active Substance: DIAZEPAM
     Indication: Psychotic disorder
     Dosage: 30 MILLIGRAM, QD
     Route: 048
     Dates: end: 20211208
  9. VALPROATE SODIUM [Suspect]
     Active Substance: VALPROATE SODIUM
     Indication: Psychotic disorder
     Dosage: 1 GRAM, QD
     Route: 065

REACTIONS (4)
  - Intestinal obstruction [Recovered/Resolved]
  - Drug interaction [Recovered/Resolved]
  - Product use in unapproved indication [Recovered/Resolved]
  - Off label use [Unknown]

NARRATIVE: CASE EVENT DATE: 20211208
